FAERS Safety Report 19602638 (Version 6)
Quarter: 2025Q3

REPORT INFORMATION
  Report Type: Spontaneous
  Country: EU (occurrence: EU)
  Receive Date: 20210723
  Receipt Date: 20250811
  Transmission Date: 20251021
  Serious: Yes (Other)
  Sender: INSMED
  Company Number: None

PATIENT
  Age: 55 Year
  Sex: Male
  Weight: 70 kg

DRUGS (42)
  1. AMIKACIN SULFATE [Suspect]
     Active Substance: AMIKACIN SULFATE
     Indication: Product used for unknown indication
     Route: 065
     Dates: start: 20210401, end: 20210401
  2. AMIKACIN SULFATE [Suspect]
     Active Substance: AMIKACIN SULFATE
     Route: 065
     Dates: start: 20210421, end: 20210421
  3. AMIKACIN SULFATE [Suspect]
     Active Substance: AMIKACIN SULFATE
     Route: 065
     Dates: start: 20210504, end: 20210504
  4. AMIKACIN SULFATE [Suspect]
     Active Substance: AMIKACIN SULFATE
     Route: 065
     Dates: start: 20210514, end: 20210514
  5. COLISTIMETHATE SODIUM [Suspect]
     Active Substance: COLISTIMETHATE SODIUM
     Indication: Product used for unknown indication
     Route: 065
     Dates: start: 20210507, end: 20210507
  6. ATRACURIUM BESYLATE [Suspect]
     Active Substance: ATRACURIUM BESYLATE
     Indication: Product used for unknown indication
     Route: 065
     Dates: start: 20210408, end: 20210430
  7. BUMETANIDE [Suspect]
     Active Substance: BUMETANIDE
     Indication: Product used for unknown indication
     Route: 065
     Dates: start: 20210505
  8. INSULIN NOS [Suspect]
     Active Substance: INSULIN NOS
     Indication: Product used for unknown indication
     Route: 065
     Dates: start: 20210326
  9. FUROSEMIDE [Suspect]
     Active Substance: FUROSEMIDE
     Indication: Product used for unknown indication
     Route: 058
     Dates: start: 20210326, end: 20210430
  10. ACYCLOVIR [Suspect]
     Active Substance: ACYCLOVIR
     Indication: Product used for unknown indication
     Route: 065
     Dates: start: 20210423, end: 20210430
  11. METRONIDAZOLE [Suspect]
     Active Substance: METRONIDAZOLE
     Indication: Product used for unknown indication
     Route: 065
     Dates: start: 20210409, end: 20210414
  12. PIPERACILLIN SODIUM\TAZOBACTAM SODIUM [Suspect]
     Active Substance: PIPERACILLIN SODIUM\TAZOBACTAM SODIUM
     Indication: Product used for unknown indication
     Route: 065
     Dates: start: 20210401, end: 20210407
  13. PIPERACILLIN SODIUM\TAZOBACTAM SODIUM [Suspect]
     Active Substance: PIPERACILLIN SODIUM\TAZOBACTAM SODIUM
     Route: 065
     Dates: start: 20210421, end: 20210423
  14. SUFENTANIL [Suspect]
     Active Substance: SUFENTANIL
     Indication: Sedation
     Route: 042
     Dates: start: 20210407, end: 20210416
  15. SUFENTANIL [Suspect]
     Active Substance: SUFENTANIL
     Route: 042
     Dates: start: 20210421, end: 20210423
  16. PROPOFOL [Suspect]
     Active Substance: PROPOFOL
     Indication: Product used for unknown indication
     Route: 065
     Dates: start: 20210407
  17. HEPARIN SODIUM [Suspect]
     Active Substance: HEPARIN SODIUM
     Indication: Anticoagulant therapy
     Route: 058
     Dates: start: 20210326
  18. HEPARIN SODIUM [Suspect]
     Active Substance: HEPARIN SODIUM
     Route: 065
  19. IMIPENEM [Suspect]
     Active Substance: IMIPENEM
     Indication: Product used for unknown indication
     Route: 065
     Dates: start: 20210326
  20. IMIPENEM [Suspect]
     Active Substance: IMIPENEM
     Route: 065
     Dates: start: 20210505, end: 20210518
  21. LANSOPRAZOLE [Suspect]
     Active Substance: LANSOPRAZOLE
     Indication: Prophylaxis against gastrointestinal ulcer
     Dosage: 30 MG, QD
     Route: 048
     Dates: start: 20210408
  22. COLISTIN SULFATE [Suspect]
     Active Substance: COLISTIN SULFATE
     Indication: Product used for unknown indication
     Route: 065
     Dates: start: 20210507, end: 20210507
  23. FRANGULA ALNUS BARK\HERBALS\KARAYA GUM [Suspect]
     Active Substance: FRANGULA ALNUS BARK\HERBALS\KARAYA GUM
     Indication: Product used for unknown indication
     Route: 065
  24. CIPROFLOXACIN [Suspect]
     Active Substance: CIPROFLOXACIN
     Indication: Product used for unknown indication
     Route: 065
     Dates: start: 20210504, end: 20210515
  25. CIPROFLOXACIN [Suspect]
     Active Substance: CIPROFLOXACIN
     Route: 065
     Dates: start: 20210508, end: 20210515
  26. MEROPENEM [Suspect]
     Active Substance: MEROPENEM
     Indication: Product used for unknown indication
     Route: 065
     Dates: start: 20210404, end: 20210506
  27. MEROPENEM [Suspect]
     Active Substance: MEROPENEM
     Route: 065
     Dates: start: 20210513, end: 20210515
  28. URAPIDIL [Suspect]
     Active Substance: URAPIDIL
     Indication: Product used for unknown indication
     Route: 065
     Dates: start: 20210418, end: 20210421
  29. MIDAZOLAM HYDROCHLORIDE [Suspect]
     Active Substance: MIDAZOLAM HYDROCHLORIDE
     Indication: Sedation
     Route: 042
     Dates: start: 20210407
  30. MIDAZOLAM HYDROCHLORIDE [Suspect]
     Active Substance: MIDAZOLAM HYDROCHLORIDE
     Indication: Seizure
  31. AZTREONAM [Suspect]
     Active Substance: AZTREONAM
     Indication: Product used for unknown indication
     Route: 065
     Dates: start: 20210423, end: 20210501
  32. HYDROCHLOROTHIAZIDE [Suspect]
     Active Substance: HYDROCHLOROTHIAZIDE
     Indication: Product used for unknown indication
     Route: 065
     Dates: start: 20210501, end: 20210504
  33. CAYSTON [Suspect]
     Active Substance: AZTREONAM
     Indication: Product used for unknown indication
     Route: 065
     Dates: start: 20210423
  34. METFORMIN [Concomitant]
     Active Substance: METFORMIN HYDROCHLORIDE
     Indication: Type 2 diabetes mellitus
     Route: 065
  35. METFORMIN [Concomitant]
     Active Substance: METFORMIN HYDROCHLORIDE
     Dosage: 850 MG, BID (MORNING AND EVENING
     Route: 065
  36. METFORMIN [Concomitant]
     Active Substance: METFORMIN HYDROCHLORIDE
     Dosage: 1700 MILLIGRAM, QD
     Route: 065
  37. METFORMIN [Concomitant]
     Active Substance: METFORMIN HYDROCHLORIDE
     Dosage: 300 MILLIGRAM, BID
     Route: 065
  38. METFORMIN [Concomitant]
     Active Substance: METFORMIN HYDROCHLORIDE
     Dosage: 150 MILLIGRAM, BID
     Route: 065
  39. HERBALS\KARAYA GUM [Concomitant]
     Active Substance: HERBALS\KARAYA GUM
     Indication: Product used for unknown indication
     Route: 065
  40. AMLODIPINE BESYLATE [Concomitant]
     Active Substance: AMLODIPINE BESYLATE
     Indication: Product used for unknown indication
     Dosage: 5 MILLIGRAM, QD, EVENING
     Route: 065
  41. POLYETHYLENE GLYCOL 3350 [Concomitant]
     Active Substance: POLYETHYLENE GLYCOL 3350
     Indication: Product used for unknown indication
     Route: 065
  42. MOVICOL [Concomitant]
     Active Substance: POLYETHYLENE GLYCOL 3350\POTASSIUM CHLORIDE\SODIUM BICARBONATE\SODIUM CHLORIDE
     Indication: Product used for unknown indication
     Route: 065

REACTIONS (8)
  - Eosinophilia [Recovering/Resolving]
  - Thrombocytopenia [Recovered/Resolved]
  - Thrombocytopenia [Recovered/Resolved]
  - Leukocytosis [Unknown]
  - Condition aggravated [Recovered/Resolved]
  - Hepatic cytolysis [Unknown]
  - Rash maculo-papular [Recovering/Resolving]
  - Rash maculo-papular [Recovering/Resolving]

NARRATIVE: CASE EVENT DATE: 20210101
